FAERS Safety Report 9537253 (Version 1)
Quarter: 2013Q3

REPORT INFORMATION
  Report Type: Spontaneous
  Country: US (occurrence: None)
  Receive Date: 20130918
  Receipt Date: 20130918
  Transmission Date: 20140515
  Serious: Yes (Other)
  Sender: FDA-Public Use
  Company Number: None

PATIENT
  Age: 27 Year
  Sex: Female
  Weight: 56.7 kg

DRUGS (1)
  1. TOPAMAX [Suspect]
     Indication: PROPHYLAXIS
     Dosage: 1 25MG TAB TWICE DAILY TAKEN BY MOUTH
     Route: 048
     Dates: start: 20110711, end: 20110714

REACTIONS (2)
  - Depression [None]
  - Suicidal ideation [None]
